FAERS Safety Report 6263147-3 (Version None)
Quarter: 2009Q3

REPORT INFORMATION
  Report Type: 
  Country: None (occurrence: None)
  Receive Date: 20090710
  Receipt Date: 20090630
  Transmission Date: 20100115
  Serious: Yes (Hospitalization)
  Sender: FDA-Public Use
  Company Number: ES-PFIZER INC-2009198789

PATIENT
  Age: 65 Year

DRUGS (8)
  1. SUNITINIB MALATE [Suspect]
     Indication: GASTRIC CANCER
     Dosage: 37.5 MG, 1X/DAY
     Route: 048
     Dates: start: 20090129
  2. CISPLATIN [Suspect]
     Indication: GASTRIC CANCER
     Dosage: 134 MG, CYCLIC: EVERY 3 WEEKS
     Route: 042
     Dates: start: 20090129
  3. FLUOROURACIL [Suspect]
     Indication: GASTRIC CANCER
     Dosage: 1432 MG, DAILY EVERY 5 DAYS, CYCLE 1 AND 2
     Route: 042
     Dates: start: 20090129
  4. FLUOROURACIL [Suspect]
     Dosage: 7000 MG (IN 96 HOURS) CONTINUOUS INFUSION, CYCLE 3
     Route: 042
  5. OMEPRAZOLE [Concomitant]
     Dosage: UNK
     Route: 048
     Dates: start: 20090101
  6. LEXATIN [Concomitant]
     Dosage: UNK
     Route: 048
     Dates: start: 20090101
  7. ROTIGOTINE [Concomitant]
     Dosage: UNK
     Route: 048
     Dates: start: 20090101
  8. SINEMET [Concomitant]
     Dosage: UNK
     Route: 048
     Dates: start: 20090101

REACTIONS (3)
  - FEBRILE NEUTROPENIA [None]
  - MUCOSAL INFLAMMATION [None]
  - ODYNOPHAGIA [None]
